FAERS Safety Report 8359159-6 (Version None)
Quarter: 2012Q2

REPORT INFORMATION
  Report Type: 
  Country: None (occurrence: None)
  Receive Date: 20120511
  Receipt Date: 20120509
  Transmission Date: 20120825
  Serious: Yes (Hospitalization, Other)
  Sender: FDA-Public Use
  Company Number: ADR-2010-9245

PATIENT
  Age: 12 Year
  Sex: Male
  Weight: 20 kg

DRUGS (7)
  1. TOPIRAMATE [Concomitant]
  2. SOLITA [Concomitant]
  3. PERIACTIN [Concomitant]
  4. DEPAKENE [Concomitant]
  5. BACLOFEN [Suspect]
     Indication: MUSCLE SPASTICITY
     Dosage: SEE B5 MCG, DAILY, INTR
     Route: 037
  6. RACOL [Concomitant]
  7. CLONAZEPAM [Concomitant]

REACTIONS (2)
  - CYCLIC VOMITING SYNDROME [None]
  - JOINT DISLOCATION [None]
